FAERS Safety Report 9920354 (Version 4)
Quarter: 2014Q2

REPORT INFORMATION
  Report Type: Report from Study
  Country: US (occurrence: US)
  Receive Date: 20140224
  Receipt Date: 20140425
  Transmission Date: 20141212
  Serious: Yes (Hospitalization)
  Sender: FDA-Public Use
  Company Number: US-ACTELION-A-US2011-57710

PATIENT
  Age: 67 Year
  Sex: Male

DRUGS (3)
  1. TRACLEER [Suspect]
     Indication: PULMONARY ARTERIAL HYPERTENSION
     Dosage: UNK
     Route: 048
     Dates: start: 20090522
  2. REVATIO [Concomitant]
  3. COUMADIN [Concomitant]

REACTIONS (6)
  - Gastric ulcer [Recovering/Resolving]
  - Stent placement [Unknown]
  - Gastrointestinal disorder [Unknown]
  - Arterial occlusive disease [Recovered/Resolved]
  - Vascular operation [Recovered/Resolved]
  - Gangrene [Unknown]
